FAERS Safety Report 5144704-4 (Version None)
Quarter: 2006Q4

REPORT INFORMATION
  Report Type: 
  Country: None (occurrence: None)
  Receive Date: 20061031
  Receipt Date: 20061018
  Transmission Date: 20070319
  Serious: Yes (Hospitalization)
  Sender: FDA-Public Use
  Company Number: 2006PV023441

PATIENT
  Age: 57 Year
  Sex: Female
  Weight: 156.491 kg

DRUGS (22)
  1. BYETTA [Suspect]
     Indication: DIABETES MELLITUS NON-INSULIN-DEPENDENT
     Dosage: 10 MCG; BID; SC; 5 MCG; BID; SC
     Route: 058
     Dates: start: 20060701, end: 20060901
  2. BYETTA [Suspect]
     Indication: DIABETES MELLITUS NON-INSULIN-DEPENDENT
     Dosage: 10 MCG; BID; SC; 5 MCG; BID; SC
     Route: 058
     Dates: start: 20060901
  3. ATENOLOL [Concomitant]
  4. MOBIC [Concomitant]
  5. ALLOPURINOL [Concomitant]
  6. LYRICA [Concomitant]
  7. EFFEXOR [Concomitant]
  8. PRILOSEC [Concomitant]
  9. LEVOXYL [Concomitant]
  10. TRIAMTERENE [Concomitant]
  11. FUROSEMIDE [Concomitant]
  12. PREMARIN [Concomitant]
  13. HUMALOG [Concomitant]
  14. LANTUS [Concomitant]
  15. METOCLOPRAMIDE [Concomitant]
  16. MAG-OX [Concomitant]
  17. KLOR-CON [Concomitant]
  18. LIPITOR [Concomitant]
  19. ACTOS [Concomitant]
  20. METHADONE HCL [Concomitant]
  21. HYDROCODONE [Concomitant]
  22. ZELNORM [Concomitant]

REACTIONS (9)
  - ANAEMIA [None]
  - BLOOD DISORDER [None]
  - DYSURIA [None]
  - FATIGUE [None]
  - IRON METABOLISM DISORDER [None]
  - MALAISE [None]
  - RENAL FAILURE ACUTE [None]
  - SLUGGISHNESS [None]
  - TREMOR [None]
